FAERS Safety Report 9928140 (Version 1)
Quarter: 2014Q1

REPORT INFORMATION
  Report Type: Spontaneous
  Country: KP (occurrence: None)
  Receive Date: 20140224
  Receipt Date: 20140224
  Transmission Date: 20141002
  Serious: Yes (Other)
  Sender: FDA-Public Use
  Company Number: 2014KP00122

PATIENT
  Age: 18 Year
  Sex: Male

DRUGS (4)
  1. CARBOPLATIN [Suspect]
     Indication: GERM CELL CANCER
     Dosage: 450 MG/M2, ON DAY 1 AND 2
  2. ETOPOSIDE [Suspect]
     Indication: GERM CELL CANCER
     Dosage: 150 MG/M2, ON DAY 0, 1 AND 2
  3. BLEOMYCIN [Suspect]
     Indication: GERM CELL CANCER
     Dosage: 15 MG/M2, ON DAY 2
  4. CYCLOPHOSPHAMIDE [Suspect]
     Indication: GERM CELL CANCER
     Dosage: 2000 MG/M2, ON DAY 0 AND 1

REACTIONS (2)
  - Renal failure acute [None]
  - Febrile neutropenia [None]
